FAERS Safety Report 13731502 (Version 2)
Quarter: 2017Q3

REPORT INFORMATION
  Report Type: Spontaneous
  Country: FR (occurrence: FR)
  Receive Date: 20170707
  Receipt Date: 20170711
  Transmission Date: 20171127
  Serious: Yes (Life-Threatening, Other)
  Sender: FDA-Public Use
  Company Number: FR-009507513-1705FRA000285

PATIENT
  Age: 71 Year
  Sex: Male

DRUGS (16)
  1. MORPHINE [Interacting]
     Active Substance: MORPHINE
     Indication: MYOCARDIAL ISCHAEMIA
     Dosage: UNK
     Route: 048
  2. MIRTAZAPINE. [Concomitant]
     Active Substance: MIRTAZAPINE
     Dosage: UNK
     Route: 048
  3. COLCHICINE. [Concomitant]
     Active Substance: COLCHICINE
     Dosage: UNK
  4. FUROSEMIDE. [Concomitant]
     Active Substance: FUROSEMIDE
     Indication: MYOCARDIAL ISCHAEMIA
     Dosage: UNK
     Route: 048
  5. CLOPIDOGREL [Concomitant]
     Active Substance: CLOPIDOGREL BISULFATE
     Dosage: UNK
  6. MORPHINE [Interacting]
     Active Substance: MORPHINE
     Route: 048
  7. MORPHINE [Interacting]
     Active Substance: MORPHINE
  8. BUDESONIDE. [Concomitant]
     Active Substance: BUDESONIDE
     Dosage: UNK
  9. PANTOPRAZOLE [Concomitant]
     Active Substance: PANTOPRAZOLE
     Dosage: UNK
  10. ALLOPURINOL. [Concomitant]
     Active Substance: ALLOPURINOL
     Dosage: UNK
  11. LISINOPRIL. [Suspect]
     Active Substance: LISINOPRIL
     Indication: MYOCARDIAL ISCHAEMIA
     Dosage: 5 MG, QD
     Route: 048
  12. TAMSULOSIN HYDROCHLORIDE. [Interacting]
     Active Substance: TAMSULOSIN HYDROCHLORIDE
     Dosage: UNK
  13. FUROSEMIDE. [Concomitant]
     Active Substance: FUROSEMIDE
  14. FENTANYL. [Concomitant]
     Active Substance: FENTANYL
     Dosage: UNK
     Route: 062
  15. ROSUVASTATIN. [Concomitant]
     Active Substance: ROSUVASTATIN
     Indication: MYOCARDIAL ISCHAEMIA
     Dosage: 10 MG, QD
  16. ZOPICLONE [Concomitant]
     Active Substance: ZOPICLONE
     Dosage: UNK

REACTIONS (2)
  - Angioedema [Recovering/Resolving]
  - Drug interaction [Recovering/Resolving]
